FAERS Safety Report 10430490 (Version 1)
Quarter: 2014Q3

REPORT INFORMATION
  Report Type: Spontaneous
  Country: US (occurrence: US)
  Receive Date: 20140904
  Receipt Date: 20140904
  Transmission Date: 20150326
  Serious: Yes (Hospitalization)
  Sender: FDA-Public Use
  Company Number: US-SA-2014SA116591

PATIENT
  Age: 75 Year
  Sex: Male

DRUGS (2)
  1. RENVELA [Suspect]
     Active Substance: SEVELAMER CARBONATE
     Indication: HYPERPHOSPHATAEMIA
     Dosage: THREE 800 MG TABLETS WITH MEALS AND ONE WITH SNACKS
     Route: 048
  2. RENVELA [Suspect]
     Active Substance: SEVELAMER CARBONATE
     Indication: HYPERPHOSPHATAEMIA
     Dosage: 400 MG; TWICE THE NUMBER OF TABLETS TO GET HIS DOSE
     Route: 048

REACTIONS (2)
  - Dysphagia [Unknown]
  - Diverticulitis [Recovering/Resolving]
